FAERS Safety Report 7973804-6 (Version None)
Quarter: 2011Q4

REPORT INFORMATION
  Report Type: 
  Country: None (occurrence: None)
  Receive Date: 20111213
  Receipt Date: 20111207
  Transmission Date: 20120403
  Serious: Yes (Death, Life-Threatening)
  Sender: FDA-Public Use
  Company Number: JP-ROCHE-801900

PATIENT
  Sex: Female

DRUGS (9)
  1. LEVOLEUCOVORIN CALCIUM [Concomitant]
     Indication: RECTAL CANCER RECURRENT
     Route: 041
     Dates: start: 20090525, end: 20090713
  2. LEVOLEUCOVORIN CALCIUM [Concomitant]
     Route: 065
     Dates: start: 20080919, end: 20081122
  3. ANTIPYRETIC NOS [Concomitant]
  4. OXALIPLATIN [Concomitant]
     Route: 065
     Dates: start: 20080919, end: 20081122
  5. FLUOROURACIL [Concomitant]
     Indication: RECTAL CANCER RECURRENT
     Route: 041
     Dates: start: 20090525, end: 20090713
  6. ISOVORIN [Concomitant]
     Indication: RECTAL CANCER RECURRENT
     Route: 041
     Dates: start: 20090525, end: 20090713
  7. OXALIPLATIN [Concomitant]
     Indication: RECTAL CANCER RECURRENT
     Dosage: DOSAGE IN UNCERTAIN
     Route: 041
  8. AVASTIN [Suspect]
     Indication: RECTAL CANCER RECURRENT
     Route: 041
     Dates: start: 20090525, end: 20090713
  9. TOPOTECAN [Concomitant]
     Indication: RECTAL CANCER RECURRENT
     Route: 041
     Dates: start: 20090525, end: 20090713

REACTIONS (2)
  - LARGE INTESTINE PERFORATION [None]
  - DISEASE PROGRESSION [None]
